FAERS Safety Report 5368435-0 (Version None)
Quarter: 2007Q2

REPORT INFORMATION
  Report Type: 
  Country: None (occurrence: None)
  Receive Date: 20070621
  Receipt Date: 20070621
  Transmission Date: 20071010
  Serious: No
  Sender: FDA-Public Use
  Company Number: None

PATIENT
  Sex: Female
  Weight: 88.905 kg

DRUGS (1)
  1. GADOLINIUM [Suspect]

REACTIONS (11)
  - ACTIVITIES OF DAILY LIVING IMPAIRED [None]
  - ERYTHEMA [None]
  - HISTAMINE LEVEL INCREASED [None]
  - PHOTOSENSITIVITY REACTION [None]
  - PRURITUS [None]
  - SKIN BURNING SENSATION [None]
  - SKIN DISORDER [None]
  - SKIN REACTION [None]
  - SOMNOLENCE [None]
  - TEMPERATURE INTOLERANCE [None]
  - URTICARIA [None]
